FAERS Safety Report 6472333-9 (Version None)
Quarter: 2009Q4

REPORT INFORMATION
  Report Type: 
  Country: None (occurrence: None)
  Receive Date: 20091119
  Receipt Date: 20091002
  Transmission Date: 20100525
  Serious: No
  Sender: FDA-Public Use
  Company Number: WAES 0910USA00351

PATIENT
  Age: 40 Year
  Sex: Female
  Weight: 97.0698 kg

DRUGS (10)
  1. JANUVIA [Suspect]
     Dosage: 100 MG/DAILY/PO
     Route: 048
     Dates: start: 20070301, end: 20070415
  2. ADVAIR DISKUS 100/50 [Concomitant]
  3. GLUCOTROL XL [Concomitant]
  4. HYZAAR [Concomitant]
  5. SINGULAIR [Concomitant]
  6. SYNTRHOID [Concomitant]
  7. VYTORIN [Concomitant]
  8. ALBUTEROL [Concomitant]
  9. LORATADINE [Concomitant]
  10. JANUVIA [Suspect]
     Dosage: 50 MG/DAILY/PO
     Route: 048
     Dates: start: 20070301, end: 20070415

REACTIONS (1)
  - HEADACHE [None]
